FAERS Safety Report 7635470-9 (Version None)
Quarter: 2011Q3

REPORT INFORMATION
  Report Type: 
  Country: None (occurrence: None)
  Receive Date: 20110726
  Receipt Date: 20110726
  Transmission Date: 20111222
  Serious: Yes (Other)
  Sender: FDA-Public Use
  Company Number: None

PATIENT
  Sex: Female
  Weight: 71.667 kg

DRUGS (2)
  1. A FRIEND'S ORAL CONTRACEPTIVE [Concomitant]
     Indication: CONTRACEPTION
     Dosage: ONE PILL
     Route: 048
     Dates: start: 20110501, end: 20110510
  2. RECLIPSEN [Suspect]
     Indication: CONTRACEPTION
     Dosage: ONE PILL
     Route: 048
     Dates: start: 20110510, end: 20110718

REACTIONS (2)
  - PREGNANCY ON ORAL CONTRACEPTIVE [None]
  - MATERNAL EXPOSURE DURING PREGNANCY [None]
